FAERS Safety Report 17366410 (Version 1)
Quarter: 2020Q1

REPORT INFORMATION
  Report Type: Spontaneous
  Country: US (occurrence: US)
  Receive Date: 20200204
  Receipt Date: 20200204
  Transmission Date: 20200409
  Serious: No
  Sender: FDA-Public Use
  Company Number: US-SA-2020SA029205

PATIENT
  Sex: Female
  Weight: 62.13 kg

DRUGS (1)
  1. AUBAGIO [Suspect]
     Active Substance: TERIFLUNOMIDE
     Indication: MULTIPLE SCLEROSIS
     Dosage: 14 MG, QD
     Route: 048
     Dates: start: 2016, end: 20200130

REACTIONS (5)
  - Visual impairment [Unknown]
  - Depression [Unknown]
  - Mobility decreased [Unknown]
  - Malaise [Unknown]
  - Condition aggravated [Unknown]
